FAERS Safety Report 9408241 (Version 2)
Quarter: 2013Q3

REPORT INFORMATION
  Report Type: Spontaneous
  Country: FR (occurrence: FR)
  Receive Date: 20130718
  Receipt Date: 20130725
  Transmission Date: 20140515
  Serious: Yes (Hospitalization)
  Sender: FDA-Public Use
  Company Number: FR-SANOFI-AVENTIS-2013SA070308

PATIENT
  Age: 58 Year
  Sex: Male

DRUGS (7)
  1. LASILIX SPECIAL [Suspect]
     Indication: PRODUCT USED FOR UNKNOWN INDICATION
     Route: 048
     Dates: start: 201301
  2. KARDEGIC [Concomitant]
     Route: 048
  3. XARELTO [Concomitant]
     Route: 048
  4. BISOPROLOL [Concomitant]
     Route: 048
  5. COVERSYL [Concomitant]
     Route: 048
  6. CORDARONE [Concomitant]
     Route: 048
  7. LEVOTHYROX [Concomitant]
     Route: 048

REACTIONS (5)
  - Cardiac failure [Recovered/Resolved]
  - Dyspnoea [Recovered/Resolved]
  - Oedema peripheral [Recovered/Resolved]
  - Weight increased [Unknown]
  - Drug ineffective [Unknown]
